FAERS Safety Report 15231779 (Version 1)
Quarter: 2018Q3

REPORT INFORMATION
  Report Type: Report from Study
  Country: BR (occurrence: BR)
  Receive Date: 20180802
  Receipt Date: 20180802
  Transmission Date: 20181010
  Serious: Yes (Other)
  Sender: FDA-Public Use
  Company Number: BR-ROCHE-2084532

PATIENT
  Age: 33 Year
  Sex: Female
  Weight: 84 kg

DRUGS (12)
  1. PREDNISONE. [Concomitant]
     Active Substance: PREDNISONE
     Indication: TONSILLITIS
     Route: 048
     Dates: start: 20180122, end: 20180126
  2. OMEPRAZOLE. [Concomitant]
     Active Substance: OMEPRAZOLE
     Indication: PROPHYLAXIS
     Route: 065
     Dates: start: 20180122, end: 20180129
  3. AMOXICILLIN/CLAVULANATE [Concomitant]
     Active Substance: AMOXICILLIN\CLAVULANATE POTASSIUM
     Indication: DEVICE RELATED INFECTION
     Route: 065
     Dates: start: 20180213, end: 20180226
  4. IBUPROFEN. [Concomitant]
     Active Substance: IBUPROFEN
     Indication: TONSILLITIS BACTERIAL
     Route: 065
     Dates: start: 20180117, end: 20180120
  5. VEMURAFENIB. [Suspect]
     Active Substance: VEMURAFENIB
     Indication: MALIGNANT MELANOMA
     Dosage: DATE OF MOST RECENT DOSE PRIOR TO AE (ADVERSE EVENT) AND SAE (SERIOUS ADVERSE EVENT) ONSET ON 14/FEB
     Route: 048
     Dates: start: 20171218
  6. ATEZOLIZUMAB. [Suspect]
     Active Substance: ATEZOLIZUMAB
     Indication: MALIGNANT MELANOMA
     Dosage: DATE OF MOST RECENT DOSE PRIOR TO AE (ADVERSE EVENT) AND SAE (SERIOUS ADVERSE EVENT) ONSET ON 29/JAN
     Route: 042
     Dates: start: 20180115
  7. CLONAZEPAM. [Concomitant]
     Active Substance: CLONAZEPAM
     Indication: ANXIETY
     Route: 065
     Dates: start: 20171120
  8. DIPYRONE [Concomitant]
     Active Substance: DIPYRONE
     Route: 065
     Dates: start: 20180208, end: 20180211
  9. LORATADINE. [Concomitant]
     Active Substance: LORATADINE
     Indication: DERMATITIS ATOPIC
     Route: 065
     Dates: start: 20180207, end: 20180207
  10. COBIMETINIB. [Suspect]
     Active Substance: COBIMETINIB
     Indication: MALIGNANT MELANOMA
     Dosage: DATE OF MOST RECENT DOSE 60 MG PRIOR TO AE (ADVERSE EVENT) AND SAE (SERIOUS ADVERSE EVENT) ONSET ON
     Route: 048
     Dates: start: 20171218
  11. DIPYRONE [Concomitant]
     Active Substance: DIPYRONE
     Indication: PYREXIA
     Route: 065
     Dates: start: 20180118, end: 20180120
  12. LEVOFLOXACIN. [Concomitant]
     Active Substance: LEVOFLOXACIN
     Indication: TONSILLITIS BACTERIAL
     Route: 065
     Dates: start: 20180119, end: 20180125

REACTIONS (1)
  - Pancreatitis [Recovered/Resolved]

NARRATIVE: CASE EVENT DATE: 20180214
